FAERS Safety Report 6386573-0 (Version None)
Quarter: 2009Q4

REPORT INFORMATION
  Report Type: 
  Country: None (occurrence: None)
  Receive Date: 20091002
  Receipt Date: 20090610
  Transmission Date: 20100525
  Serious: Yes (Other)
  Sender: FDA-Public Use
  Company Number: US-ASTRAZENECA-2009UW07735

PATIENT
  Sex: Female
  Weight: 77.1 kg

DRUGS (6)
  1. ARIMIDEX [Suspect]
     Indication: BREAST CANCER
     Route: 048
     Dates: start: 20080601, end: 20081101
  2. ARIMIDEX [Suspect]
     Route: 048
  3. LIPITOR [Concomitant]
  4. COD OIL [Concomitant]
  5. MULTI-VITAMIN [Concomitant]
  6. TAMOXIFEN CITRATE [Concomitant]

REACTIONS (3)
  - CARPAL TUNNEL SYNDROME [None]
  - HYPOAESTHESIA [None]
  - PARAESTHESIA [None]
